FAERS Safety Report 6576675-8 (Version None)
Quarter: 2010Q1

REPORT INFORMATION
  Report Type: 
  Country: None (occurrence: None)
  Receive Date: 20100210
  Receipt Date: 20100201
  Transmission Date: 20100710
  Serious: Yes (Hospitalization)
  Sender: FDA-Public Use
  Company Number: FR-ASTRAZENECA-2010SE05177

PATIENT
  Age: 67 Year
  Sex: Male

DRUGS (18)
  1. NEXIUM [Suspect]
     Route: 048
     Dates: start: 20091120, end: 20091126
  2. KETOPROFEN [Suspect]
     Indication: PAIN
     Route: 048
     Dates: start: 20091120, end: 20091126
  3. APROVEL [Suspect]
     Indication: HYPERTENSION
     Route: 048
     Dates: start: 20091124, end: 20091129
  4. LASILIX [Suspect]
     Route: 048
     Dates: end: 20091129
  5. HYZAAR [Suspect]
     Route: 065
     Dates: end: 20091124
  6. CRESTOR [Concomitant]
     Route: 048
  7. AMLOR [Concomitant]
     Route: 065
  8. KARDEGIC [Concomitant]
     Route: 065
  9. ATENOLOL [Concomitant]
     Route: 065
  10. AVANDIA [Concomitant]
     Route: 065
  11. ALLOPURINOL [Concomitant]
     Route: 065
  12. PERMIXON [Concomitant]
     Route: 065
  13. LEXOMIL [Concomitant]
     Route: 065
  14. TOPALGIC [Concomitant]
     Route: 065
  15. DIFFU K [Concomitant]
     Route: 065
  16. LEVEMIR [Concomitant]
     Route: 065
  17. EDUCTYL [Concomitant]
     Route: 065
  18. FORLAX [Concomitant]
     Route: 065

REACTIONS (1)
  - RENAL FAILURE ACUTE [None]
